FAERS Safety Report 19631524 (Version 3)
Quarter: 2022Q1

REPORT INFORMATION
  Report Type: Spontaneous
  Country: US (occurrence: US)
  Receive Date: 20210728
  Receipt Date: 20220204
  Transmission Date: 20220423
  Serious: Yes (Hospitalization, Other)
  Sender: FDA-Public Use
  Company Number: US-ROCHE-2643461

PATIENT
  Sex: Female

DRUGS (5)
  1. XELODA [Suspect]
     Active Substance: CAPECITABINE
     Indication: Product used for unknown indication
     Dosage: 3 PILLS IN THE MORNING AND 2 IN THE EVENING
     Route: 048
  2. XELODA [Suspect]
     Active Substance: CAPECITABINE
     Dosage: 3 PILLS IN THE MORNING AND 2 IN THE EVENING
     Route: 048
  3. TUKYSA [Concomitant]
     Active Substance: TUCATINIB
     Indication: Breast cancer female
     Route: 048
     Dates: end: 20200617
  4. TUKYSA [Concomitant]
     Active Substance: TUCATINIB
  5. TUKYSA [Concomitant]
     Active Substance: TUCATINIB

REACTIONS (11)
  - Hepatotoxicity [Recovered/Resolved]
  - Feeling abnormal [Unknown]
  - Amnesia [Unknown]
  - Hepatic enzyme increased [Unknown]
  - Diarrhoea [Unknown]
  - Abdominal pain [Unknown]
  - Nausea [Unknown]
  - Malaise [Unknown]
  - Spinal fracture [Unknown]
  - Sedation [Unknown]
  - Pain [Unknown]
